FAERS Safety Report 17027790 (Version 2)
Quarter: 2020Q1

REPORT INFORMATION
  Report Type: Spontaneous
  Country: JP (occurrence: JP)
  Receive Date: 20191113
  Receipt Date: 20200103
  Transmission Date: 20200409
  Serious: Yes (Life-Threatening)
  Sender: FDA-Public Use
  Company Number: JP-ALLERGAN-1945285US

PATIENT
  Sex: Male

DRUGS (6)
  1. ATARAX-P [Suspect]
     Active Substance: HYDROXYZINE HYDROCHLORIDE
     Indication: RESTLESSNESS
     Dosage: 25 MG AT BEDTIME
     Dates: start: 20190804, end: 20190804
  2. ASENAPINE MALEATE - BP [Suspect]
     Active Substance: ASENAPINE MALEATE
     Indication: INSOMNIA
  3. SERENACE [Suspect]
     Active Substance: HALOPERIDOL
     Indication: RESTLESSNESS
     Dosage: 5 MG AT BET TIME
     Route: 042
     Dates: start: 20190802, end: 20190804
  4. ACETAMINOPHEN. [Concomitant]
     Active Substance: ACETAMINOPHEN
     Dosage: UNK
     Dates: start: 20190731, end: 20190803
  5. ASENAPINE MALEATE - BP [Suspect]
     Active Substance: ASENAPINE MALEATE
     Indication: DELIRIUM
     Dosage: 5 MG, QD
     Route: 065
     Dates: start: 20190805, end: 20190807
  6. FUROSEMIDE. [Concomitant]
     Active Substance: FUROSEMIDE
     Dosage: UNK
     Dates: start: 20190801, end: 20190819

REACTIONS (1)
  - Glossoptosis [Recovered/Resolved]

NARRATIVE: CASE EVENT DATE: 20190808
